FAERS Safety Report 7707644-X (Version None)
Quarter: 2011Q3

REPORT INFORMATION
  Report Type: 
  Country: None (occurrence: None)
  Receive Date: 20110824
  Receipt Date: 20110817
  Transmission Date: 20111222
  Serious: Yes (Other)
  Sender: FDA-Public Use
  Company Number: US-BAYER-2011-019094

PATIENT
  Age: 29 Year
  Sex: Female
  Weight: 80.726 kg

DRUGS (5)
  1. SUMATRIPTAN SUCCINATE [Concomitant]
     Dosage: 100 MG, UNK
     Route: 048
     Dates: start: 20101227
  2. MIRENA [Suspect]
     Indication: CONTRACEPTION
     Dosage: 20 ?G, CONT
     Route: 015
     Dates: start: 20101012, end: 20110225
  3. LOESTRIN 1.5/30 [Concomitant]
     Indication: ORAL CONTRACEPTION
     Dosage: UNK
     Dates: start: 20110201
  4. PROAIR HFA [Concomitant]
     Dosage: UNK
     Dates: start: 20101205
  5. PROPRANOLOL [Concomitant]
     Dosage: 20 MG, UNK
     Route: 048
     Dates: start: 20101124

REACTIONS (11)
  - PAIN [None]
  - PUBIC PAIN [None]
  - SUPPRESSED LACTATION [None]
  - ABDOMINAL PAIN [None]
  - UTERINE PERFORATION [None]
  - DEVICE DISLOCATION [None]
  - PROCEDURAL PAIN [None]
  - PELVIC PAIN [None]
  - AMENORRHOEA [None]
  - ABDOMINAL DISTENSION [None]
  - GENITAL HAEMORRHAGE [None]
